FAERS Safety Report 14766508 (Version 2)
Quarter: 2018Q4

REPORT INFORMATION
  Report Type: Report from Study
  Country: US (occurrence: US)
  Receive Date: 20180416
  Receipt Date: 20181009
  Transmission Date: 20190204
  Serious: Yes (Other)
  Sender: FDA-Public Use
  Company Number: PHEH2018US014303

PATIENT
  Sex: Female

DRUGS (1)
  1. COSENTYX [Suspect]
     Active Substance: SECUKINUMAB
     Indication: PRODUCT USED FOR UNKNOWN INDICATION
     Dosage: 300 MG, QMO
     Route: 065

REACTIONS (6)
  - Drug hypersensitivity [Unknown]
  - Gastric disorder [Unknown]
  - Psoriatic arthropathy [Unknown]
  - Chest pain [Unknown]
  - Feeling abnormal [Unknown]
  - Oropharyngeal pain [Unknown]
